FAERS Safety Report 6997759-6 (Version None)
Quarter: 2010Q3

REPORT INFORMATION
  Report Type: 
  Country: None (occurrence: None)
  Receive Date: 20100919
  Receipt Date: 20100917
  Transmission Date: 20110219
  Serious: Yes (Death, Hospitalization)
  Sender: FDA-Public Use
  Company Number: PHHY2010TW17754

PATIENT
  Sex: Female

DRUGS (2)
  1. GLEEVEC [Suspect]
     Indication: CHRONIC MYELOID LEUKAEMIA
     Dosage: 800 MG, UNK
     Route: 048
     Dates: start: 20090429
  2. SPRYCEL [Concomitant]
     Dosage: UNK
     Dates: start: 20090702, end: 20091130

REACTIONS (2)
  - INFECTION [None]
  - WHITE BLOOD CELL COUNT DECREASED [None]
